FAERS Safety Report 10903203 (Version 1)
Quarter: 2015Q1

REPORT INFORMATION
  Report Type: Spontaneous
  Country: US (occurrence: US)
  Receive Date: 20150311
  Receipt Date: 20150311
  Transmission Date: 20150721
  Serious: No
  Sender: FDA-Public Use
  Company Number: US-TEVA-529592USA

PATIENT
  Sex: Female

DRUGS (1)
  1. TEMOZOLOMIDE. [Suspect]
     Active Substance: TEMOZOLOMIDE
     Dosage: 2 TABS X 5 DAYS IN A 28 DAY CYCLE
     Route: 048

REACTIONS (2)
  - Nausea [Unknown]
  - Adverse event [Unknown]
